FAERS Safety Report 7289707-9 (Version None)
Quarter: 2011Q1

REPORT INFORMATION
  Report Type: 
  Country: None (occurrence: None)
  Receive Date: 20110214
  Receipt Date: 20110203
  Transmission Date: 20110831
  Serious: No
  Sender: FDA-Public Use
  Company Number: US-BIOGENIDEC-2010BI043254

PATIENT
  Age: 38 Year
  Sex: Female

DRUGS (1)
  1. TYSABRI [Suspect]
     Indication: MULTIPLE SCLEROSIS
     Route: 042
     Dates: start: 20101122

REACTIONS (6)
  - HYPOAESTHESIA [None]
  - NASOPHARYNGITIS [None]
  - VISION BLURRED [None]
  - FATIGUE [None]
  - SINUSITIS [None]
  - PARAESTHESIA [None]
